FAERS Safety Report 5147197-6 (Version None)
Quarter: 2006Q4

REPORT INFORMATION
  Report Type: 
  Country: None (occurrence: None)
  Receive Date: 20061103
  Receipt Date: 20061102
  Transmission Date: 20070319
  Serious: Yes (Life-Threatening, Hospitalization)
  Sender: FDA-Public Use
  Company Number: HQWYE510131JUL06

PATIENT
  Age: 76 Year
  Sex: Female

DRUGS (7)
  1. MYLOTARG [Suspect]
     Indication: ACUTE MYELOID LEUKAEMIA
     Dosage: 9 MG/M^2 1X PER 1 DAY, INTRAVENOUS DRIP
     Route: 041
     Dates: start: 20060602, end: 20060602
  2. CIPROXAN (CIPROFLOXACIN HYDROCHLORIDE) [Suspect]
     Indication: PNEUMONIA
     Dosage: 300 MG/DAY INTRAVENOUS DRIP
     Route: 041
     Dates: start: 20060620, end: 20060622
  3. NEUPOGEN [Suspect]
     Indication: NEUTROPHIL COUNT DECREASED
     Dosage: 300 UG/DAY, INTRAVENOUS DRIP
     Route: 041
     Dates: start: 20060614, end: 20060621
  4. OMEGACIN (BIAPENEM, INJECTION) [Suspect]
     Indication: PNEUMONIA
     Dosage: 1.2 G/DAY, INTRAVENOUS DRIP
     Route: 041
     Dates: start: 20060616, end: 20060618
  5. VANCOMYCIN [Suspect]
     Indication: PNEUMONIA
     Dosage: 1 G/DAY, INTRAVENOUS DRIP
     Route: 041
     Dates: start: 20060614, end: 20060621
  6. STRONG NEO-MINOPHAGEN C (AMINOACETIC ACID/CYSTEINE/GLYCYRRHIZIC ACID) [Concomitant]
  7. VFEND [Concomitant]

REACTIONS (18)
  - ALANINE AMINOTRANSFERASE INCREASED [None]
  - ASPARTATE AMINOTRANSFERASE INCREASED [None]
  - BLOOD UREA INCREASED [None]
  - HAEMATOCRIT DECREASED [None]
  - HAEMOGLOBIN DECREASED [None]
  - HYPERNATRAEMIA [None]
  - LIVER DISORDER [None]
  - NEUTROPHIL COUNT DECREASED [None]
  - PLATELET COUNT DECREASED [None]
  - PNEUMONIA [None]
  - RED BLOOD CELL COUNT DECREASED [None]
  - RENAL DISORDER [None]
  - RESPIRATORY FAILURE [None]
  - SEPSIS [None]
  - SYSTEMIC MYCOSIS [None]
  - TUMOUR LYSIS SYNDROME [None]
  - UPPER GASTROINTESTINAL HAEMORRHAGE [None]
  - WHITE BLOOD CELL COUNT DECREASED [None]
